FAERS Safety Report 6143434-X (Version None)
Quarter: 2009Q2

REPORT INFORMATION
  Report Type: 
  Country: None (occurrence: None)
  Receive Date: 20090403
  Receipt Date: 20090313
  Transmission Date: 20091009
  Serious: No
  Sender: FDA-Public Use
  Company Number: CA-B.I. PHARMACEUTICALS,INC./RIDGEFIELD-2009-BP-04088BP

PATIENT
  Sex: Male

DRUGS (1)
  1. MIRAPEX [Suspect]
     Indication: PARKINSON'S DISEASE
     Dosage: 4.5MG
     Dates: start: 19980302, end: 20050523

REACTIONS (3)
  - AGGRESSION [None]
  - HYPERSEXUALITY [None]
  - PATHOLOGICAL GAMBLING [None]
